FAERS Safety Report 9007914 (Version 1)
Quarter: 2013Q1

REPORT INFORMATION
  Report Type: Spontaneous
  Country: US (occurrence: US)
  Receive Date: 20130111
  Receipt Date: 20130111
  Transmission Date: 20140127
  Serious: Yes (Other)
  Sender: FDA-Public Use
  Company Number: US-009507513-0909USA03419

PATIENT
  Age: 9 Year
  Sex: Male
  Weight: 31.75 kg

DRUGS (1)
  1. SINGULAIR [Suspect]
     Indication: MULTIPLE ALLERGIES
     Dosage: 5 MG, QD
     Route: 048
     Dates: start: 20070820, end: 20090304

REACTIONS (7)
  - Bruxism [Unknown]
  - Dyskinesia [Unknown]
  - Excessive eye blinking [Unknown]
  - Feeling abnormal [Recovered/Resolved]
  - Tic [Recovered/Resolved]
  - Anxiety [Recovered/Resolved]
  - Depressed mood [Recovered/Resolved]
